FAERS Safety Report 8919835 (Version 1)
Quarter: 2012Q4

REPORT INFORMATION
  Report Type: 
  Country: US (occurrence: US)
  Receive Date: 20121121
  Receipt Date: 20121121
  Transmission Date: 20130627
  Serious: Yes (Hospitalization)
  Sender: FDA-Public Use
  Company Number: US-JNJFOC-20121106421

PATIENT
  Sex: Female
  Weight: 95.26 kg

DRUGS (19)
  1. REMICADE [Suspect]
     Indication: RHEUMATOID ARTHRITIS
     Route: 042
     Dates: start: 201202, end: 201205
  2. DIOVAN [Concomitant]
     Indication: BLOOD PRESSURE
     Route: 065
  3. ATENOLOL [Concomitant]
     Indication: BLOOD PRESSURE
     Route: 065
  4. INSULIN LANTUS [Concomitant]
     Indication: DIABETES MELLITUS
     Dosage: 46-5- units once daily
     Route: 058
  5. NOVOLOG [Concomitant]
     Indication: DIABETES MELLITUS
     Route: 065
  6. ALL OTHER THERAPEUTICS [Concomitant]
     Indication: DIABETES MELLITUS
     Route: 065
  7. CYMBALTA [Concomitant]
     Route: 065
  8. WELLBUTRIN [Concomitant]
     Indication: DEPRESSION
     Route: 048
  9. METHOTREXATE [Concomitant]
     Indication: ARTHRITIS
     Route: 048
  10. LYRICA [Concomitant]
     Indication: NEURALGIA
     Route: 048
  11. TIZANIDINE [Concomitant]
     Indication: MUSCLE SPASMS
     Route: 048
  12. PANTOPRAZOLE [Concomitant]
     Indication: GASTROOESOPHAGEAL REFLUX DISEASE
     Route: 048
  13. VITAMIN D [Concomitant]
     Route: 048
  14. VITAMIN B COMPLEX [Concomitant]
     Route: 048
  15. CALCIUM WITH VITAMIN D [Concomitant]
     Route: 048
  16. BIOTIN [Concomitant]
     Indication: NAIL DISORDER
     Route: 048
  17. BABY ASPIRIN [Concomitant]
     Route: 048
  18. NASAL CORTICOSTEROID [Concomitant]
     Indication: MULTIPLE ALLERGIES
     Route: 045
  19. RESTASIS [Concomitant]
     Indication: DRY EYE
     Dosage: 2-3 drops
     Route: 047

REACTIONS (2)
  - Rheumatoid arthritis [Recovered/Resolved]
  - Meniscus injury [Unknown]
